FAERS Safety Report 24160813 (Version 1)
Quarter: 2024Q3

REPORT INFORMATION
  Report Type: Spontaneous
  Country: EG (occurrence: EG)
  Receive Date: 20240801
  Receipt Date: 20240801
  Transmission Date: 20241016
  Serious: Yes (Life-Threatening, Hospitalization)
  Sender: ROCHE
  Company Number: EG-ROCHE-10000033367

PATIENT
  Age: 61 Year
  Sex: Female
  Weight: 80 kg

DRUGS (2)
  1. PHESGO [Suspect]
     Active Substance: HYALURONIDASE-ZZXF\PERTUZUMAB\TRASTUZUMAB
     Indication: Breast cancer
     Route: 058
     Dates: start: 20230710
  2. PHESGO [Suspect]
     Active Substance: HYALURONIDASE-ZZXF\PERTUZUMAB\TRASTUZUMAB
     Route: 058
     Dates: start: 20240612

REACTIONS (3)
  - Blood creatinine increased [Recovered/Resolved with Sequelae]
  - Acute kidney injury [Recovered/Resolved with Sequelae]
  - Dysuria [Recovered/Resolved with Sequelae]
